FAERS Safety Report 9919466 (Version 5)
Quarter: 2015Q2

REPORT INFORMATION
  Report Type: Spontaneous
  Country: US (occurrence: US)
  Receive Date: 20140224
  Receipt Date: 20150605
  Transmission Date: 20150821
  Serious: Yes (Other)
  Sender: FDA-Public Use
  Company Number: US-PFIZER INC-2014051562

PATIENT
  Age: 47 Year
  Sex: Male

DRUGS (2)
  1. CHANTIX [Suspect]
     Active Substance: VARENICLINE TARTRATE
     Indication: TOBACCO ABUSE
     Dosage: UNK (0.5-1 STARTER PACK)
     Route: 048
     Dates: start: 20111014, end: 20111107
  2. CHANTIX [Suspect]
     Active Substance: VARENICLINE TARTRATE
     Indication: SMOKING CESSATION THERAPY
     Dosage: UNK
     Route: 048
     Dates: start: 201209

REACTIONS (4)
  - Pharyngeal oedema [Unknown]
  - Throat tightness [Recovered/Resolved]
  - Drug hypersensitivity [Unknown]
  - Dyspnoea [Unknown]

NARRATIVE: CASE EVENT DATE: 20111107
